FAERS Safety Report 8307186-7 (Version None)
Quarter: 2012Q2

REPORT INFORMATION
  Report Type: 
  Country: None (occurrence: None)
  Receive Date: 20120424
  Receipt Date: 20120416
  Transmission Date: 20120825
  Serious: Yes (Hospitalization)
  Sender: FDA-Public Use
  Company Number: US-VERTEX PHARMACEUTICALS INC.-AE-2012-005487

PATIENT
  Sex: Male
  Weight: 122.58 kg

DRUGS (3)
  1. INCIVEK [Suspect]
     Indication: HEPATITIS C
     Route: 048
     Dates: start: 20120120, end: 20120412
  2. PEGASYS [Concomitant]
     Indication: HEPATITIS C
     Route: 048
     Dates: start: 20120120
  3. RIBAVIRIN [Concomitant]
     Indication: HEPATITIS C
     Route: 048
     Dates: start: 20120120

REACTIONS (3)
  - DYSPNOEA [None]
  - DIARRHOEA [None]
  - PYREXIA [None]
